FAERS Safety Report 24261963 (Version 3)
Quarter: 2024Q3

REPORT INFORMATION
  Report Type: Spontaneous
  Country: US (occurrence: US)
  Receive Date: 20240829
  Receipt Date: 20240916
  Transmission Date: 20241017
  Serious: Yes (Hospitalization, Other)
  Sender: BRISTOL MYERS SQUIBB
  Company Number: US-BRISTOL-MYERS SQUIBB COMPANY-2024-135274

PATIENT
  Age: 75 Year
  Sex: Female
  Weight: 58.97 kg

DRUGS (18)
  1. ELIQUIS [Suspect]
     Active Substance: APIXABAN
     Indication: Deep vein thrombosis
     Route: 048
     Dates: start: 20240415, end: 20240522
  2. ENCORAFENIB [Suspect]
     Active Substance: ENCORAFENIB
     Indication: Colorectal cancer
     Route: 048
     Dates: start: 20240315
  3. ERBITUX [Suspect]
     Active Substance: CETUXIMAB
     Indication: Colorectal cancer
     Route: 041
     Dates: start: 20240315
  4. LEUCOVORIN CALCIUM [Suspect]
     Active Substance: LEUCOVORIN CALCIUM
     Indication: Colorectal cancer
     Dosage: FORMULATION: 400 MG/M2
     Route: 041
     Dates: start: 20240315
  5. LEUCOVORIN CALCIUM [Suspect]
     Active Substance: LEUCOVORIN CALCIUM
     Dosage: FORMULATION: 400 MG/M2
     Route: 041
     Dates: start: 20240315
  6. IRINOTECAN [Suspect]
     Active Substance: IRINOTECAN
     Indication: Colorectal cancer
     Dosage: FORMULATION: 400 MG/M2
     Route: 041
     Dates: start: 20240315
  7. IRINOTECAN [Suspect]
     Active Substance: IRINOTECAN
     Dosage: FORMULATION: 400 MG/M2
     Route: 041
     Dates: start: 20240315
  8. FLUOROURACIL [Suspect]
     Active Substance: FLUOROURACIL
     Indication: Colorectal cancer
     Dosage: FORMULATION: 2000 MG/M2
     Route: 041
     Dates: start: 20240315
  9. FLUOROURACIL [Suspect]
     Active Substance: FLUOROURACIL
     Dosage: FORMULATION: 320MG/M2
     Route: 040
     Dates: start: 20240315
  10. FLUOROURACIL [Suspect]
     Active Substance: FLUOROURACIL
     Dosage: FORMULATION: 320MG/M2
     Route: 040
     Dates: start: 20240315
  11. FLUOROURACIL [Suspect]
     Active Substance: FLUOROURACIL
     Dosage: FORMULATION: 2000 MG/M2
     Route: 041
     Dates: start: 20240315
  12. REMERON [Concomitant]
     Active Substance: MIRTAZAPINE
     Indication: Decreased appetite
     Route: 048
     Dates: start: 20240307
  13. PANTOPRAZOLE [Concomitant]
     Active Substance: PANTOPRAZOLE
     Indication: Gastrooesophageal reflux disease
     Route: 048
     Dates: start: 20240311
  14. MINOCYCLINE [Concomitant]
     Active Substance: MINOCYCLINE HYDROCHLORIDE
     Indication: Disturbance in attention
     Route: 048
     Dates: start: 20240315
  15. MODAFINIL [Concomitant]
     Active Substance: MODAFINIL
     Indication: Fatigue
     Route: 048
     Dates: start: 20240502
  16. MIRALAX [Concomitant]
     Active Substance: POLYETHYLENE GLYCOL 3350
     Indication: Constipation
     Route: 048
     Dates: start: 20240422
  17. GABAPENTIN [Concomitant]
     Active Substance: GABAPENTIN
     Indication: Pain
     Route: 048
     Dates: start: 20240307
  18. TYLENOL [Concomitant]
     Active Substance: ACETAMINOPHEN
     Indication: Pain
     Route: 048
     Dates: start: 20240611

REACTIONS (13)
  - Lactic acidosis [Recovered/Resolved]
  - Pleural effusion [Recovered/Resolved]
  - Acute kidney injury [Recovered/Resolved]
  - Thrombocytopenia [Recovered/Resolved]
  - Failure to thrive [Recovered/Resolved]
  - Haematochezia [Unknown]
  - Blood fibrinogen decreased [Recovered/Resolved]
  - Dyspnoea exertional [Unknown]
  - Fatigue [Recovered/Resolved]
  - Asthenia [Unknown]
  - Gait disturbance [Unknown]
  - Dyspnoea [Unknown]
  - Off label use [Unknown]

NARRATIVE: CASE EVENT DATE: 20240730
